FAERS Safety Report 10592669 (Version 3)
Quarter: 2015Q1

REPORT INFORMATION
  Report Type: Report from Study
  Country: US (occurrence: US)
  Receive Date: 20141119
  Receipt Date: 20150114
  Transmission Date: 20150720
  Serious: Yes (Other)
  Sender: FDA-Public Use
  Company Number: US-BAYER-2014-167362

PATIENT
  Age: 72 Year
  Sex: Female

DRUGS (1)
  1. STIVARGA [Suspect]
     Active Substance: REGORAFENIB
     Indication: COLORECTAL CANCER METASTATIC
     Dosage: 80 MG DAILY
     Route: 048
     Dates: start: 201409

REACTIONS (11)
  - Gastrointestinal motility disorder [None]
  - Asthenia [None]
  - Headache [None]
  - Pain in extremity [None]
  - Dyspnoea [None]
  - Visual impairment [None]
  - Dysphonia [None]
  - Peripheral swelling [None]
  - Pain in extremity [None]
  - Chills [None]
  - Hyperkeratosis [None]

NARRATIVE: CASE EVENT DATE: 201409
